FAERS Safety Report 16764985 (Version 1)
Quarter: 2019Q3

REPORT INFORMATION
  Report Type: Spontaneous
  Country: FR (occurrence: FR)
  Receive Date: 20190903
  Receipt Date: 20190903
  Transmission Date: 20191005
  Serious: Yes (Hospitalization)
  Sender: FDA-Public Use
  Company Number: FR-ABBVIE-19P-056-2908727-00

PATIENT
  Age: 57 Year
  Sex: Male

DRUGS (2)
  1. ENANTONE LP [Suspect]
     Active Substance: LEUPROLIDE ACETATE
     Indication: PROSTATE CANCER
     Dosage: UNKNOWN
     Route: 030
     Dates: start: 20190620, end: 20190620
  2. FASLODEX [Suspect]
     Active Substance: FULVESTRANT
     Indication: PROSTATE CANCER
     Dosage: UNKNOWN
     Route: 030
     Dates: start: 20190615, end: 20190615

REACTIONS (1)
  - Drug reaction with eosinophilia and systemic symptoms [Recovering/Resolving]

NARRATIVE: CASE EVENT DATE: 20190807
